FAERS Safety Report 6206189-6 (Version None)
Quarter: 2009Q2

REPORT INFORMATION
  Report Type: 
  Country: None (occurrence: None)
  Receive Date: 20090528
  Receipt Date: 20080725
  Transmission Date: 20091009
  Serious: No
  Sender: FDA-Public Use
  Company Number: US-KINGPHARMUSA00001-K200800895

PATIENT
  Sex: Male

DRUGS (2)
  1. AVINZA [Suspect]
     Dosage: UNK, QD
     Route: 048
  2. AVINZA [Suspect]
     Dosage: 60 MG, QD
     Route: 048

REACTIONS (1)
  - DEPRESSION [None]
